FAERS Safety Report 8838154 (Version 2)
Quarter: 2015Q3

REPORT INFORMATION
  Report Type: Report from Study
  Country: US (occurrence: US)
  Receive Date: 20121012
  Receipt Date: 20150818
  Transmission Date: 20151125
  Serious: Yes (Other)
  Sender: FDA-Public Use
  Company Number: US-ROCHE-1139655

PATIENT
  Sex: Male
  Weight: 21.91 kg

DRUGS (10)
  1. PROTROPIN [Suspect]
     Active Substance: SOMATREM
     Route: 065
  2. CORTEF [Concomitant]
     Active Substance: HYDROCORTISONE
     Route: 065
  3. CORTEF [Concomitant]
     Active Substance: HYDROCORTISONE
     Route: 065
  4. PROTROPIN [Suspect]
     Active Substance: SOMATREM
     Route: 065
  5. PROTROPIN [Suspect]
     Active Substance: SOMATREM
     Route: 058
  6. PROTROPIN [Suspect]
     Active Substance: SOMATREM
     Indication: HYPOPITUITARISM
     Route: 058
     Dates: start: 19951017
  7. PROTROPIN [Suspect]
     Active Substance: SOMATREM
     Dosage: 0.12 CC, RECEIVED ON 28/OCT/1998
     Route: 065
  8. PROTROPIN [Suspect]
     Active Substance: SOMATREM
     Dosage: ON 11/SEP/1998, RECEIVED 0.18 CC (10 MG VIAL IN 2 CC DILUENT) EVERDAY
     Route: 058
  9. SOLU-CORTEF [Concomitant]
     Active Substance: HYDROCORTISONE SODIUM SUCCINATE
  10. PROTROPIN [Suspect]
     Active Substance: SOMATREM
     Route: 058

REACTIONS (6)
  - Sleep apnoea syndrome [Unknown]
  - Vomiting [Unknown]
  - Hypoglycaemia [Unknown]
  - Snoring [Unknown]
  - Seizure [Unknown]
  - Influenza [Unknown]
